FAERS Safety Report 6714753-0 (Version None)
Quarter: 2010Q2

REPORT INFORMATION
  Report Type: 
  Country: None (occurrence: None)
  Receive Date: 20100507
  Receipt Date: 20100429
  Transmission Date: 20101027
  Serious: No
  Sender: FDA-Public Use
  Company Number: US-BIOGENIDEC-2010BI014673

PATIENT
  Sex: Female

DRUGS (1)
  1. TYSABRI [Suspect]
     Indication: MULTIPLE SCLEROSIS
     Route: 042
     Dates: start: 20091120

REACTIONS (10)
  - BACK PAIN [None]
  - BALANCE DISORDER [None]
  - BREAST PAIN [None]
  - CHEST PAIN [None]
  - MALAISE [None]
  - MUSCLE SPASMS [None]
  - PAIN [None]
  - PAIN IN EXTREMITY [None]
  - PARAESTHESIA [None]
  - PROCEDURAL COMPLICATION [None]
